FAERS Safety Report 7168706-1 (Version None)
Quarter: 2010Q4

REPORT INFORMATION
  Report Type: 
  Country: None (occurrence: None)
  Receive Date: 20101216
  Receipt Date: 20100122
  Transmission Date: 20110411
  Serious: No
  Sender: FDA-Public Use
  Company Number: US-AMGEN-US388107

PATIENT

DRUGS (2)
  1. ENBREL [Suspect]
     Indication: PSORIATIC ARTHROPATHY
     Dosage: 50 MG, 2 TIMES/WK
     Route: 058
     Dates: start: 20090302
  2. ENBREL [Suspect]
     Indication: PSORIASIS

REACTIONS (4)
  - FALL [None]
  - PAIN IN EXTREMITY [None]
  - PSORIASIS [None]
  - TENDON INJURY [None]
